FAERS Safety Report 10594293 (Version 2)
Quarter: 2015Q1

REPORT INFORMATION
  Report Type: Spontaneous
  Country: US (occurrence: US)
  Receive Date: 20141119
  Receipt Date: 20150203
  Transmission Date: 20150720
  Serious: No
  Sender: FDA-Public Use
  Company Number: US-TEVA-523570USA

PATIENT
  Age: 31 Year
  Sex: Female
  Weight: 83.99 kg

DRUGS (2)
  1. PARAGARD T 380A [Suspect]
     Active Substance: COPPER
     Route: 015
     Dates: start: 20141117
  2. PARAGARD T 380A [Suspect]
     Active Substance: COPPER
     Indication: CONTRACEPTION
     Route: 015
     Dates: start: 20141016, end: 20141117

REACTIONS (2)
  - Device expulsion [Recovered/Resolved]
  - Menorrhagia [Recovered/Resolved]

NARRATIVE: CASE EVENT DATE: 20141107
